FAERS Safety Report 5285819-X (Version None)
Quarter: 2007Q1

REPORT INFORMATION
  Report Type: 
  Country: None (occurrence: None)
  Receive Date: 20070116
  Receipt Date: 20061013
  Transmission Date: 20070707
  Serious: No
  Sender: FDA-Public Use
  Company Number: 2006SP003706

PATIENT
  Age: 87 Year
  Sex: Female

DRUGS (7)
  1. LUNESTA [Suspect]
     Indication: INSOMNIA
     Dosage: HS;ORAL
     Route: 048
     Dates: start: 20060924
  2. LEXAPRO [Suspect]
     Indication: DEPRESSION
     Dosage: 10 MG;QD;ORAL
     Route: 048
     Dates: start: 20060923
  3. NEURONTIN [Concomitant]
  4. XANAX [Concomitant]
  5. AMLODIPINE [Concomitant]
  6. ZESTRIL [Concomitant]
  7. VITAMIN CAP [Concomitant]

REACTIONS (1)
  - FATIGUE [None]
